FAERS Safety Report 6421850-6 (Version None)
Quarter: 2009Q4

REPORT INFORMATION
  Report Type: 
  Country: None (occurrence: None)
  Receive Date: 20091030
  Receipt Date: 20091020
  Transmission Date: 20100525
  Serious: Yes (Hospitalization)
  Sender: FDA-Public Use
  Company Number: US-ABBOTT-09P-163-0603955-00

PATIENT
  Sex: Female

DRUGS (1)
  1. HUMIRA [Suspect]
     Indication: RHEUMATOID ARTHRITIS
     Dates: start: 20010102, end: 20070202

REACTIONS (5)
  - BLISTER [None]
  - FALL [None]
  - GAIT DISTURBANCE [None]
  - LOCALISED INFECTION [None]
  - THERMAL BURN [None]
